FAERS Safety Report 20152424 (Version 1)
Quarter: 2021Q4

REPORT INFORMATION
  Report Type: Spontaneous
  Country: US (occurrence: None)
  Receive Date: 20211206
  Receipt Date: 20211206
  Transmission Date: 20220303
  Serious: Yes (Hospitalization)
  Sender: FDA-Public Use
  Company Number: None

PATIENT
  Sex: Male
  Weight: 75.7 kg

DRUGS (5)
  1. CYTARABINE [Suspect]
     Active Substance: CYTARABINE
  2. DAUNORUBICIN [Concomitant]
  3. METHOTREXATE [Concomitant]
  4. PEG-L-ASPARAGINASE (PEGASPARGASE, CONCOSPAR) [Concomitant]
  5. VINCRISTINE SULFATE [Concomitant]
     Active Substance: VINCRISTINE SULFATE

REACTIONS (2)
  - Pain in extremity [None]
  - Infective myositis [None]

NARRATIVE: CASE EVENT DATE: 20211127
